FAERS Safety Report 5866544-0 (Version None)
Quarter: 2008Q3

REPORT INFORMATION
  Report Type: 
  Country: None (occurrence: None)
  Receive Date: 20080902
  Receipt Date: 20080825
  Transmission Date: 20090109
  Serious: Yes (Other)
  Sender: FDA-Public Use
  Company Number: US-CELGENEUS-163-20785-08080210

PATIENT
  Sex: Female

DRUGS (3)
  1. THALOMID [Suspect]
     Indication: MULTIPLE MYELOMA
     Route: 048
     Dates: start: 20051223, end: 20060701
  2. THALOMID [Suspect]
     Route: 048
     Dates: start: 20031231
  3. THALOMID [Suspect]
     Route: 048
     Dates: start: 20060805, end: 20070301

REACTIONS (1)
  - NEOPLASM [None]
